FAERS Safety Report 7036414-3 (Version None)
Quarter: 2010Q4

REPORT INFORMATION
  Report Type: 
  Country: None (occurrence: None)
  Receive Date: 20101010
  Receipt Date: 20100930
  Transmission Date: 20110411
  Serious: Yes (Hospitalization)
  Sender: FDA-Public Use
  Company Number: PHHY2010NL65058

PATIENT
  Sex: Male

DRUGS (3)
  1. ZOMETA [Suspect]
     Dosage: 04 MG/5 ML
     Dates: start: 20090807
  2. ZOMETA [Suspect]
     Dosage: 04 MG/5 ML
     Dates: start: 20100902
  3. ZOMETA [Suspect]
     Dosage: 04 MG/5 ML
     Dates: start: 20100930

REACTIONS (2)
  - ACTIVITIES OF DAILY LIVING IMPAIRED [None]
  - CEREBROVASCULAR ACCIDENT [None]
